FAERS Safety Report 5961761-3 (Version None)
Quarter: 2008Q4

REPORT INFORMATION
  Report Type: 
  Country: None (occurrence: None)
  Receive Date: 20081121
  Receipt Date: 20081112
  Transmission Date: 20090506
  Serious: Yes (Hospitalization, Other)
  Sender: FDA-Public Use
  Company Number: US-BAXTER-2008BH008437

PATIENT
  Age: 56 Year
  Sex: Male
  Weight: 99 kg

DRUGS (3)
  1. GAMMAGARD LIQUID [Suspect]
     Indication: POLYNEUROPATHY
     Route: 042
     Dates: start: 20080630, end: 20080701
  2. GAMMAGARD LIQUID [Suspect]
     Indication: OFF LABEL USE
     Route: 042
     Dates: start: 20080630, end: 20080701
  3. PROMETHAZINE [Concomitant]
     Indication: DRUG USE FOR UNKNOWN INDICATION
     Route: 042
     Dates: start: 20080630, end: 20080701

REACTIONS (1)
  - DRUG INEFFECTIVE [None]
